FAERS Safety Report 13064137 (Version 1)
Quarter: 2016Q4

REPORT INFORMATION
  Report Type: Spontaneous
  Country: US (occurrence: US)
  Receive Date: 20161223
  Receipt Date: 20161223
  Transmission Date: 20170207
  Serious: Yes (Other)
  Sender: FDA-Public Use
  Company Number: None

PATIENT
  Age: 60 Year
  Sex: Male

DRUGS (1)
  1. CEFOXITIN 2 GRAM SAGENT [Suspect]
     Active Substance: CEFOXITIN SODIUM
     Indication: ARTHRITIS INFECTIVE
     Route: 042
     Dates: start: 20161108, end: 20161212

REACTIONS (1)
  - Paraesthesia [None]

NARRATIVE: CASE EVENT DATE: 20161212
